FAERS Safety Report 8738993 (Version 3)
Quarter: 2012Q4

REPORT INFORMATION
  Report Type: 
  Country: DE (occurrence: DE)
  Receive Date: 20120823
  Receipt Date: 20120830
  Transmission Date: 20130627
  Serious: Yes (Other)
  Sender: FDA-Public Use
  Company Number: DE-PFIZER INC-2012196888

PATIENT
  Age: 36 Year
  Sex: Female
  Weight: 104 kg

DRUGS (5)
  1. RAMIPRIL [Suspect]
     Indication: HYPERTENSION
     Dosage: 2.5 mg, 1x/day
     Route: 048
  2. RAMIPRIL [Suspect]
     Dosage: 5 mg, 1x/day
     Route: 048
  3. NEBILET [Suspect]
     Indication: HYPERTENSION
     Dosage: 5 mg, 1x/day
     Route: 048
  4. L-THYROX [Concomitant]
     Indication: HYPOTHYROIDISM
     Dosage: 50 ug, 1x/day
     Route: 048
  5. VITAVERLAN [Concomitant]
     Indication: PROPHYLAXIS OF NEURAL TUBE DEFECT
     Dosage: 0.4 ug, 1x/day
     Route: 048
     Dates: start: 20110829, end: 20120405

REACTIONS (4)
  - Gestational diabetes [Unknown]
  - Oligohydramnios [Unknown]
  - Premature rupture of membranes [Unknown]
  - Breech presentation [Unknown]
